FAERS Safety Report 13002498 (Version 1)
Quarter: 2016Q4

REPORT INFORMATION
  Report Type: Spontaneous
  Country: US (occurrence: US)
  Receive Date: 20161206
  Receipt Date: 20161206
  Transmission Date: 20170207
  Serious: Yes (Other)
  Sender: FDA-Public Use
  Company Number: US-JNJFOC-20161201710

PATIENT
  Age: 53 Year
  Sex: Female

DRUGS (2)
  1. RITALIN [Concomitant]
     Active Substance: METHYLPHENIDATE HYDROCHLORIDE
     Indication: ATTENTION DEFICIT/HYPERACTIVITY DISORDER
     Route: 048
  2. LEVAQUIN [Suspect]
     Active Substance: LEVOFLOXACIN
     Indication: SINUSITIS
     Route: 048
     Dates: start: 20130405, end: 20130415

REACTIONS (6)
  - Insomnia [Recovered/Resolved]
  - Pain [Not Recovered/Not Resolved]
  - Tendon calcification [Not Recovered/Not Resolved]
  - Abasia [Recovered/Resolved]
  - Rash [Recovered/Resolved]
  - Tendonitis [Not Recovered/Not Resolved]

NARRATIVE: CASE EVENT DATE: 201304
